FAERS Safety Report 11172339 (Version 3)
Quarter: 2015Q3

REPORT INFORMATION
  Report Type: Spontaneous
  Country: IT (occurrence: IT)
  Receive Date: 20150608
  Receipt Date: 20150707
  Transmission Date: 20151125
  Serious: Yes (Death, Hospitalization)
  Sender: FDA-Public Use
  Company Number: IT-PFIZER INC-2015188748

PATIENT
  Age: 64 Year
  Sex: Female

DRUGS (1)
  1. XALKORI [Suspect]
     Active Substance: CRIZOTINIB
     Indication: LUNG ADENOCARCINOMA
     Dosage: 500 MG, DAILY
     Route: 048
     Dates: start: 20150331, end: 20150527

REACTIONS (4)
  - Coma hepatic [Not Recovered/Not Resolved]
  - Hepatic failure [Fatal]
  - Transaminases increased [Not Recovered/Not Resolved]
  - Jaundice [Not Recovered/Not Resolved]

NARRATIVE: CASE EVENT DATE: 20150527
